FAERS Safety Report 5740130-5 (Version None)
Quarter: 2008Q2

REPORT INFORMATION
  Report Type: 
  Country: None (occurrence: None)
  Receive Date: 20080513
  Receipt Date: 20080429
  Transmission Date: 20081010
  Serious: Yes (Death)
  Sender: FDA-Public Use
  Company Number: DSA_31810_2008

PATIENT
  Age: 66 Year
  Sex: Female

DRUGS (7)
  1. DILTIAZEM [Suspect]
  2. AMITRIPTLINE HCL [Suspect]
  3. ANADIN EXTRA (ANADIN EXTRA - ACETYLSALICYLIC ACID + CAFFEINE + PARACET [Suspect]
  4. MIRTAZAPINE [Suspect]
  5. PLIVA - ZOPLICLONE [Suspect]
  6. PLIVA - ZOPLICLONE [Suspect]
     Indication: SLEEP DISORDER
     Dosage: (7.5 MG QD ORAL)
     Route: 048
  7. ACETYLSALICYLIC ACID SRT [Concomitant]

REACTIONS (4)
  - ACUTE PULMONARY OEDEMA [None]
  - COMPLETED SUICIDE [None]
  - HEPATIC STEATOSIS [None]
  - MULTIPLE DRUG OVERDOSE INTENTIONAL [None]
